FAERS Safety Report 9200555 (Version 1)
Quarter: 2013Q1

REPORT INFORMATION
  Report Type: Other
  Country: IT (occurrence: IT)
  Receive Date: 20130329
  Receipt Date: 20130329
  Transmission Date: 20140127
  Serious: Yes (Other)
  Sender: FDA-Public Use
  Company Number: IT-WATSON-2013-05356

PATIENT
  Age: 82 Year
  Sex: Male
  Weight: 55 kg

DRUGS (3)
  1. PARACETAMOL (UNKNOWN) [Suspect]
     Indication: PAIN
     Dosage: 500 MG, DAILY
     Route: 048
     Dates: start: 20120101, end: 20121215
  2. TRAMADOL HYDROCHLORIDE (UNKNOWN) [Suspect]
     Indication: PAIN
     Dosage: 100 MG, DAILY
     Route: 048
     Dates: start: 20120101, end: 20121215
  3. AMIODARONE HYDROCHLORIDE (UNKNOWN) [Suspect]
     Indication: ATRIAL FIBRILLATION
     Dosage: 1000 MG, UNK WEEKLY
     Dates: start: 20121201, end: 20121215

REACTIONS (1)
  - Hepatitis cholestatic [Recovered/Resolved]
